FAERS Safety Report 7970632-2 (Version None)
Quarter: 2011Q4

REPORT INFORMATION
  Report Type: 
  Country: None (occurrence: None)
  Receive Date: 20111212
  Receipt Date: 20111207
  Transmission Date: 20120403
  Serious: No
  Sender: FDA-Public Use
  Company Number: US-BAYER-2011-118384

PATIENT
  Age: 84 Year
  Sex: Female
  Weight: 50 kg

DRUGS (3)
  1. GABAPENTIN [Concomitant]
  2. NAPROXEN (ALEVE) [Suspect]
     Indication: BACK PAIN
     Dosage: 2 DF, QD
     Dates: start: 20111107
  3. HYDROCODONE [Concomitant]

REACTIONS (1)
  - NO ADVERSE EVENT [None]
